FAERS Safety Report 7844844-2 (Version None)
Quarter: 2011Q4

REPORT INFORMATION
  Report Type: 
  Country: None (occurrence: None)
  Receive Date: 20111025
  Receipt Date: 20111004
  Transmission Date: 20120403
  Serious: Yes (Other)
  Sender: FDA-Public Use
  Company Number: FR-GLAXOSMITHKLINE-B0747246A

PATIENT
  Sex: Female

DRUGS (1)
  1. SORIATANE [Suspect]
     Indication: KERATOSIS FOLLICULAR
     Dosage: 10MG PER DAY
     Route: 048
     Dates: start: 20110628, end: 20110728

REACTIONS (3)
  - APATHY [None]
  - MOROSE [None]
  - DEPRESSED MOOD [None]
